FAERS Safety Report 4841440-6 (Version None)
Quarter: 2005Q4

REPORT INFORMATION
  Report Type: 
  Country: None (occurrence: None)
  Receive Date: 20051130
  Receipt Date: 20050720
  Transmission Date: 20060501
  Serious: Yes (Hospitalization, Other)
  Sender: FDA-Public Use
  Company Number: US-GLAXOSMITHKLINE-A0567037A

PATIENT
  Age: 49 Year
  Sex: Male
  Weight: 130.9 kg

DRUGS (2)
  1. WELLBUTRIN [Suspect]
     Indication: DRUG USE FOR UNKNOWN INDICATION
     Dosage: 300MG PER DAY
     Route: 048
     Dates: start: 20050711, end: 20050718
  2. NO CONCURRENT MEDICATION [Concomitant]

REACTIONS (1)
  - PULMONARY EMBOLISM [None]
